FAERS Safety Report 24936959 (Version 1)
Quarter: 2025Q1

REPORT INFORMATION
  Report Type: Spontaneous
  Country: US (occurrence: None)
  Receive Date: 20250205
  Receipt Date: 20250205
  Transmission Date: 20250409
  Serious: Yes (Other)
  Sender: FDA-CTU
  Company Number: None

PATIENT
  Age: 13 Year
  Sex: Female
  Weight: 44.91 kg

DRUGS (1)
  1. OSELTAMIVIR [Suspect]
     Active Substance: OSELTAMIVIR
     Indication: Influenza
     Dosage: OTHER QUANTITY : 1 CAPSULE(S);?FREQUENCY : TWICE A DAY;?
     Route: 048
     Dates: start: 20250201, end: 20250202

REACTIONS (6)
  - Inappropriate affect [None]
  - Energy increased [None]
  - Abnormal behaviour [None]
  - Suicidal ideation [None]
  - Intentional self-injury [None]
  - Intentional self-injury [None]

NARRATIVE: CASE EVENT DATE: 20250201
